FAERS Safety Report 18986855 (Version 4)
Quarter: 2022Q2

REPORT INFORMATION
  Report Type: Spontaneous
  Country: US (occurrence: US)
  Receive Date: 20210309
  Receipt Date: 20220520
  Transmission Date: 20220720
  Serious: No
  Sender: FDA-Public Use
  Company Number: US-PFIZER INC-2020047621

PATIENT
  Age: 77 Year

DRUGS (2)
  1. ARTHROTEC [Suspect]
     Active Substance: DICLOFENAC SODIUM\MISOPROSTOL
     Indication: Osteoarthritis
     Dosage: 75 MG, 2X/DAY (TAKE 1 TABLET TWO TIMES A DAY) (DICLOFENAC-MISOPROSTOL 75-0.2 MG)
     Route: 048
  2. ARTHROTEC [Suspect]
     Active Substance: DICLOFENAC SODIUM\MISOPROSTOL
     Dosage: 50 MG

REACTIONS (2)
  - Product prescribing error [Unknown]
  - Limb injury [Unknown]
